FAERS Safety Report 19221773 (Version 1)
Quarter: 2021Q2

REPORT INFORMATION
  Report Type: Spontaneous
  Country: US (occurrence: US)
  Receive Date: 20210505
  Receipt Date: 20210505
  Transmission Date: 20210717
  Serious: No
  Sender: FDA-Public Use
  Company Number: None

PATIENT
  Age: 36 Year
  Sex: Female
  Weight: 58.5 kg

DRUGS (4)
  1. DYSPORT [Suspect]
     Active Substance: ABOBOTULINUMTOXINA
     Indication: SKIN COSMETIC PROCEDURE
     Route: 030
     Dates: start: 20210331, end: 20210331
  2. MAGNESIUM [Concomitant]
     Active Substance: MAGNESIUM
  3. PARACETAMOL [Concomitant]
     Active Substance: ACETAMINOPHEN
  4. DYSPORT [Suspect]
     Active Substance: ABOBOTULINUMTOXINA
     Indication: SKIN WRINKLING
     Route: 030
     Dates: start: 20210331, end: 20210331

REACTIONS (2)
  - Swelling face [None]
  - Post procedural complication [None]

NARRATIVE: CASE EVENT DATE: 20210401
